FAERS Safety Report 5593964-4 (Version None)
Quarter: 2007Q4

REPORT INFORMATION
  Report Type: 
  Country: None (occurrence: None)
  Receive Date: 20071218
  Receipt Date: 20070515
  Transmission Date: 20080405
  Serious: Yes (Hospitalization, Other)
  Sender: FDA-Public Use
  Company Number: 2007040083

PATIENT
  Sex: Female
  Weight: 88.5 kg

DRUGS (1)
  1. BEXTRA [Suspect]

REACTIONS (1)
  - EMBOLISM [None]
